FAERS Safety Report 10267386 (Version 1)
Quarter: 2014Q2

REPORT INFORMATION
  Report Type: Spontaneous
  Country: GB (occurrence: GB)
  Receive Date: 20140630
  Receipt Date: 20140630
  Transmission Date: 20141212
  Serious: Yes (Other)
  Sender: FDA-Public Use
  Company Number: GB-MYLANLABS-2014S1014509

PATIENT
  Age: 61 Year
  Sex: Female
  Weight: 55.33 kg

DRUGS (5)
  1. RISEDRONATE SODIUM [Suspect]
     Indication: OSTEOPOROSIS
     Dosage: NOT KNOWN
     Route: 048
     Dates: start: 2010, end: 2012
  2. ADCAL /00056901/ [Concomitant]
     Indication: OSTEOPOROSIS
     Dates: start: 2009
  3. OILATUM /00103901/ [Concomitant]
  4. OMEPRAZOLE [Concomitant]
  5. ZOLEDRONIC ACID [Concomitant]
     Indication: OSTEOPOROSIS
     Route: 042
     Dates: start: 201402, end: 201402

REACTIONS (5)
  - Rosacea [Not Recovered/Not Resolved]
  - Pruritus [Unknown]
  - Pain of skin [Unknown]
  - Photosensitivity reaction [Unknown]
  - Papule [Unknown]
